FAERS Safety Report 5492687-X (Version None)
Quarter: 2007Q4

REPORT INFORMATION
  Report Type: 
  Country: None (occurrence: None)
  Receive Date: 20071017
  Receipt Date: 20071004
  Transmission Date: 20080405
  Serious: Yes (Other)
  Sender: FDA-Public Use
  Company Number: 2007332739

PATIENT
  Sex: Female

DRUGS (1)
  1. LISTERINE ELECTRIC TOOTHPASTE (MENTHOL, METHYL SALICYLATE, SODIUM MONO [Suspect]
     Dosage: ORAL, TOPICAL
     Route: 061

REACTIONS (3)
  - MOUTH ULCERATION [None]
  - ORAL INTAKE REDUCED [None]
  - STOMATITIS [None]
